FAERS Safety Report 8349469-0 (Version None)
Quarter: 2012Q2

REPORT INFORMATION
  Report Type: 
  Country: None (occurrence: None)
  Receive Date: 20120510
  Receipt Date: 20120508
  Transmission Date: 20120825
  Serious: Yes (Death)
  Sender: FDA-Public Use
  Company Number: DZ-SANOFI-AVENTIS-2012SA032443

PATIENT
  Age: 69 Year
  Sex: Male
  Weight: 50 kg

DRUGS (3)
  1. FEXOFENADINE [Concomitant]
     Indication: PREMEDICATION
     Dosage: START DATE WAS REPORTED AS D1-3 AND END DATE WAS REPORTED AS D1+7 DAYS.
     Route: 048
  2. SOLU-MEDROL [Concomitant]
     Indication: PREMEDICATION
     Dosage: START DATE WAS REPORTED AS D1-1 AND END DATE WAS REPORTED AS D1+2ROUTE: INJ/ PER OS
  3. TAXOTERE [Suspect]
     Indication: CHEMOTHERAPY
     Dosage: DOSE REPORTED AS 375 MG/M2/57 MG/D1+D8
     Route: 042
     Dates: start: 20120314, end: 20120430

REACTIONS (1)
  - NOCTURNAL DYSPNOEA [None]
